FAERS Safety Report 19434648 (Version 2)
Quarter: 2022Q2

REPORT INFORMATION
  Report Type: Spontaneous
  Country: US (occurrence: None)
  Receive Date: 20210617
  Receipt Date: 20220609
  Transmission Date: 20220721
  Serious: No
  Sender: FDA-Public Use
  Company Number: US-ROCHE-2667993

PATIENT
  Age: 19 Year
  Sex: Female

DRUGS (2)
  1. ACTEMRA [Suspect]
     Active Substance: TOCILIZUMAB
     Indication: Juvenile idiopathic arthritis
     Dosage: ACTPEN 162 MG/0.9M
     Route: 058
     Dates: start: 20200807
  2. ACTEMRA [Suspect]
     Active Substance: TOCILIZUMAB

REACTIONS (6)
  - Drug ineffective [Unknown]
  - Blood potassium decreased [Unknown]
  - Blood calcium decreased [Unknown]
  - Arthralgia [Unknown]
  - Joint swelling [Unknown]
  - Pain [Unknown]

NARRATIVE: CASE EVENT DATE: 20210830
